FAERS Safety Report 10166750 (Version 1)
Quarter: 2014Q2

REPORT INFORMATION
  Report Type: Spontaneous
  Country: US (occurrence: None)
  Receive Date: 20140509
  Receipt Date: 20140509
  Transmission Date: 20141212
  Serious: Yes (Hospitalization)
  Sender: FDA-Public Use
  Company Number: None

PATIENT
  Age: 64 Year
  Sex: Female
  Weight: 73.18 kg

DRUGS (2)
  1. CISPLATIN [Suspect]
  2. GEMCITABINE HYDROCHLORIDE [Suspect]

REACTIONS (8)
  - Palpitations [None]
  - Chest discomfort [None]
  - Dizziness [None]
  - Supraventricular tachycardia [None]
  - Drug ineffective [None]
  - Troponin increased [None]
  - Hypomagnesaemia [None]
  - Anaemia [None]
